FAERS Safety Report 5279838-7 (Version None)
Quarter: 2007Q1

REPORT INFORMATION
  Report Type: 
  Country: None (occurrence: None)
  Receive Date: 20070327
  Receipt Date: 20070327
  Transmission Date: 20070707
  Serious: Yes (Other)
  Sender: FDA-Public Use
  Company Number: None

PATIENT
  Age: 30 Year
  Sex: Female
  Weight: 78.0187 kg

DRUGS (2)
  1. MONISTAT 7 [Suspect]
     Indication: FUNGAL INFECTION
     Dosage: 100MG  7 DAYS   VAG
     Route: 067
     Dates: start: 20070324, end: 20070324
  2. MONISTAT 7 [Suspect]
     Indication: FUNGAL INFECTION
     Dosage: 100MG  7 DAYS   VAG
     Route: 067
     Dates: start: 20070326, end: 20070326

REACTIONS (5)
  - APPLICATION SITE IRRITATION [None]
  - BURNING SENSATION [None]
  - DRUG EXPOSURE DURING PREGNANCY [None]
  - PAIN [None]
  - PRURITUS [None]
